FAERS Safety Report 5022080-5 (Version None)
Quarter: 2006Q2

REPORT INFORMATION
  Report Type: 
  Country: None (occurrence: None)
  Receive Date: 20060428
  Receipt Date: 20060313
  Transmission Date: 20061013
  Serious: No
  Sender: FDA-Public Use
  Company Number: COT_0485_2006

PATIENT
  Age: 44 Year
  Sex: Female
  Weight: 85.2762 kg

DRUGS (17)
  1. VENTAVIS [Suspect]
     Indication: PULMONARY HYPERTENSION
     Dosage: 2.5 MCG ONCE
     Route: 055
     Dates: start: 20050519, end: 20050519
  2. VENTAVIS [Suspect]
     Indication: PULMONARY HYPERTENSION
     Dosage: 5 MCG 6TO7X/DAY IH
     Route: 055
     Dates: start: 20050519
  3. VENTAVIS [Suspect]
     Indication: PULMONARY HYPERTENSION
     Dosage: 2.5 MCG 6TO8X/DAY IH
     Route: 055
     Dates: end: 20060309
  4. VENTAVIS [Suspect]
     Indication: PULMONARY HYPERTENSION
     Dosage: 5 MCG 6TO8X/DAY IH
     Route: 055
     Dates: start: 20060309, end: 20060320
  5. VENTAVIS [Suspect]
     Indication: PULMONARY HYPERTENSION
     Dosage: 5 MCG 6TO8X/DAY IH
     Route: 055
     Dates: start: 20060321
  6. TRACLEER [Concomitant]
  7. NORVASC [Concomitant]
  8. NITROGLYCERIN [Concomitant]
  9. NASONEX [Concomitant]
  10. CLIMARA [Concomitant]
  11. VIVELLE [Concomitant]
  12. K-DUR 10 [Concomitant]
  13. DARVOCET [Concomitant]
  14. DEMEDEX [Concomitant]
  15. PREVACID [Concomitant]
  16. COUMADIN [Concomitant]
  17. OXYGEN [Concomitant]

REACTIONS (8)
  - DRUG INEFFECTIVE [None]
  - DYSPNOEA [None]
  - ERYTHEMA [None]
  - FATIGUE [None]
  - FLUID RETENTION [None]
  - HEADACHE [None]
  - HEART RATE INCREASED [None]
  - MALAISE [None]
